FAERS Safety Report 5902587-6 (Version None)
Quarter: 2008Q3

REPORT INFORMATION
  Report Type: 
  Country: None (occurrence: None)
  Receive Date: 20080924
  Receipt Date: 20080911
  Transmission Date: 20090109
  Serious: Yes (Death, Hospitalization, Other)
  Sender: FDA-Public Use
  Company Number: 52404

PATIENT
  Age: 30 Year
  Sex: Male

DRUGS (1)
  1. METHOTREXATE [Suspect]
     Indication: ACUTE LYMPHOCYTIC LEUKAEMIA

REACTIONS (9)
  - FEBRILE NEUTROPENIA [None]
  - NEUROGENIC BLADDER [None]
  - PALLANAESTHESIA [None]
  - PARAPARESIS [None]
  - PNEUMONIA BACTERIAL [None]
  - RADICULOPATHY [None]
  - RESPIRATORY TRACT INFECTION [None]
  - SEPSIS [None]
  - URINARY TRACT INFECTION [None]
